FAERS Safety Report 11914061 (Version 1)
Quarter: 2016Q1

REPORT INFORMATION
  Report Type: Spontaneous
  Country: US (occurrence: US)
  Receive Date: 20160113
  Receipt Date: 20160113
  Transmission Date: 20160526
  Serious: Yes (Other)
  Sender: FDA-Public Use
  Company Number: US-FRESENIUS KABI-FK201600122

PATIENT
  Age: 12 Year
  Sex: Female

DRUGS (9)
  1. NITROUS OXIDE. [Concomitant]
     Active Substance: NITROUS OXIDE
  2. BUPIVACAINE [Concomitant]
     Active Substance: BUPIVACAINE
     Indication: MAINTENANCE OF ANAESTHESIA
  3. RIGNER^S SOLUTION [Concomitant]
     Indication: MAINTENANCE OF ANAESTHESIA
  4. MIDAZOLAM [Suspect]
     Active Substance: MIDAZOLAM\MIDAZOLAM HYDROCHLORIDE
     Indication: SURGERY
     Route: 048
  5. LIDOCAINE. [Concomitant]
     Active Substance: LIDOCAINE
     Indication: MAINTENANCE OF ANAESTHESIA
  6. SEVOFLURANE. [Suspect]
     Active Substance: SEVOFLURANE
     Route: 055
  7. EPINEPHRINE. [Concomitant]
     Active Substance: EPINEPHRINE
     Indication: MAINTENANCE OF ANAESTHESIA
  8. SEVOFLURANE. [Suspect]
     Active Substance: SEVOFLURANE
     Route: 065
  9. SEVOFLURANE. [Suspect]
     Active Substance: SEVOFLURANE
     Route: 055

REACTIONS (3)
  - Aphasia [Recovered/Resolved]
  - Anaesthetic complication neurological [Recovered/Resolved]
  - Agnosia [Recovered/Resolved]
